FAERS Safety Report 24055096 (Version 10)
Quarter: 2025Q4

REPORT INFORMATION
  Report Type: Report from Study
  Country: US (occurrence: US)
  Receive Date: 20240705
  Receipt Date: 20251124
  Transmission Date: 20260117
  Serious: Yes (Other)
  Sender: TAKEDA
  Company Number: US-TAKEDA-2024TUS012888

PATIENT
  Sex: Female

DRUGS (8)
  1. LANADELUMAB [Suspect]
     Active Substance: LANADELUMAB
     Indication: Immune system disorder
     Dosage: 300 MILLIGRAM, Q2WEEKS
     Dates: start: 202401
  2. LANADELUMAB [Suspect]
     Active Substance: LANADELUMAB
     Dosage: UNK UNK, Q2WEEKS
  3. LANADELUMAB [Suspect]
     Active Substance: LANADELUMAB
  4. FIRAZYR [Concomitant]
     Active Substance: ICATIBANT ACETATE
     Dosage: UNK
  5. ICATIBANT ACETATE [Concomitant]
     Active Substance: ICATIBANT ACETATE
     Dosage: UNK
  6. SAJAZIR [Concomitant]
     Active Substance: ICATIBANT ACETATE
     Dosage: UNK
  7. EKTERLY [Concomitant]
     Active Substance: SEBETRALSTAT
     Dosage: UNK
  8. ANDEMBRY [Concomitant]
     Active Substance: GARADACIMAB-GXII
     Dosage: UNK

REACTIONS (13)
  - Pneumonia [Unknown]
  - Hyperhidrosis [Recovering/Resolving]
  - Palpitations [Unknown]
  - Weight increased [Unknown]
  - Weight decreased [Unknown]
  - Product dose omission issue [Unknown]
  - Liquid product physical issue [Unknown]
  - Abdominal pain [Unknown]
  - Stress [Unknown]
  - Chest pain [Unknown]
  - Hereditary angioedema [Recovered/Resolved]
  - Injection site pain [Unknown]
  - Dizziness [Recovering/Resolving]

NARRATIVE: CASE EVENT DATE: 20240207
